FAERS Safety Report 6698374-4 (Version None)
Quarter: 2010Q2

REPORT INFORMATION
  Report Type: 
  Country: None (occurrence: None)
  Receive Date: 20100427
  Receipt Date: 20100419
  Transmission Date: 20101027
  Serious: Yes (Life-Threatening, Hospitalization, Disabling)
  Sender: FDA-Public Use
  Company Number: CH-ROCHE-693163

PATIENT
  Sex: Male
  Weight: 132 kg

DRUGS (1)
  1. AVASTIN [Suspect]
     Route: 042
     Dates: start: 20081101, end: 20100201

REACTIONS (2)
  - GLOMERULONEPHRITIS PROLIFERATIVE [None]
  - THROMBOTIC MICROANGIOPATHY [None]
